FAERS Safety Report 4664328-2 (Version None)
Quarter: 2005Q2

REPORT INFORMATION
  Report Type: 
  Country: None (occurrence: None)
  Receive Date: 20050518
  Receipt Date: 20050420
  Transmission Date: 20051028
  Serious: Yes (Other)
  Sender: FDA-Public Use
  Company Number: US-BRISTOL-MYERS SQUIBB COMPANY-12941803

PATIENT
  Sex: Female

DRUGS (2)
  1. PARAPLATIN AQ [Suspect]
     Indication: BREAST CANCER METASTATIC
     Route: 042
     Dates: end: 20050413
  2. TAXOTERE [Suspect]
     Indication: BREAST CANCER METASTATIC
     Route: 042

REACTIONS (4)
  - BRONCHOSPASM [None]
  - GENERALISED ERYTHEMA [None]
  - GENERALISED OEDEMA [None]
  - PRODUCTIVE COUGH [None]
